FAERS Safety Report 16223784 (Version 1)
Quarter: 2019Q2

REPORT INFORMATION
  Report Type: Spontaneous
  Country: JP (occurrence: JP)
  Receive Date: 20190422
  Receipt Date: 20190422
  Transmission Date: 20190711
  Serious: Yes (Other)
  Sender: FDA-Public Use
  Company Number: JP-JNJFOC-20190430740

PATIENT

DRUGS (2)
  1. XARELTO [Suspect]
     Active Substance: RIVAROXABAN
     Indication: ATRIAL FIBRILLATION
     Route: 048
  2. XARELTO [Suspect]
     Active Substance: RIVAROXABAN
     Indication: ATRIAL FIBRILLATION
     Route: 048

REACTIONS (21)
  - Retinal haemorrhage [Unknown]
  - Haemorrhage [Unknown]
  - Cerebrovascular accident [Unknown]
  - Metrorrhagia [Unknown]
  - Blood creatine phosphokinase increased [Unknown]
  - Pharyngeal haemorrhage [Unknown]
  - Haemoptysis [Unknown]
  - Haemorrhage subcutaneous [Unknown]
  - Melaena [Unknown]
  - Cerebral haemorrhage [Unknown]
  - Haematuria [Unknown]
  - Off label use [Unknown]
  - Gastrointestinal haemorrhage [Unknown]
  - Embolism [Unknown]
  - Ear haemorrhage [Unknown]
  - Occult blood positive [Unknown]
  - Renal impairment [Unknown]
  - Epistaxis [Unknown]
  - Prothrombin time prolonged [Unknown]
  - Post procedural haemorrhage [Unknown]
  - Gingival bleeding [Unknown]
